FAERS Safety Report 20663471 (Version 1)
Quarter: 2022Q2

REPORT INFORMATION
  Report Type: Spontaneous
  Country: US (occurrence: None)
  Receive Date: 20220401
  Receipt Date: 20220401
  Transmission Date: 20220721
  Serious: No
  Sender: FDA-Public Use
  Company Number: None

PATIENT
  Sex: Male

DRUGS (1)
  1. TREMFYA [Suspect]
     Active Substance: GUSELKUMAB
     Indication: Psoriasis
     Dosage: OTHER FREQUENCY : EVERY 8 WEEKS;?
     Route: 058
     Dates: start: 202110

REACTIONS (9)
  - Eyelash changes [None]
  - Pruritus [None]
  - Irritability [None]
  - Secretion discharge [None]
  - COVID-19 [None]
  - Injection site discolouration [None]
  - Drug interaction [None]
  - Drug ineffective [None]
  - Psoriasis [None]
